FAERS Safety Report 9671634 (Version 1)
Quarter: 2013Q4

REPORT INFORMATION
  Report Type: Spontaneous
  Country: US (occurrence: US)
  Receive Date: 20131106
  Receipt Date: 20131106
  Transmission Date: 20140711
  Serious: Yes (Other)
  Sender: FDA-Public Use
  Company Number: US-PFIZER INC-2013315869

PATIENT
  Sex: Female

DRUGS (1)
  1. LYRICA [Suspect]
     Indication: CONVULSION
     Dosage: UNK

REACTIONS (2)
  - Convulsion [Unknown]
  - Pain [Unknown]
